FAERS Safety Report 20108371 (Version 1)
Quarter: 2021Q4

REPORT INFORMATION
  Report Type: Spontaneous
  Country: US (occurrence: US)
  Receive Date: 20211124
  Receipt Date: 20211124
  Transmission Date: 20220303
  Serious: No
  Sender: FDA-Public Use
  Company Number: US-PERRIGO-21US008423

PATIENT
  Age: 68 Year
  Sex: Female
  Weight: 68.027 kg

DRUGS (12)
  1. POLYETHYLENE GLYCOL 3350 [Suspect]
     Active Substance: POLYETHYLENE GLYCOL 3350
     Indication: Constipation
     Dosage: 17 OR 8.5 G, NIGHTLY
     Route: 048
     Dates: start: 20210529, end: 20210602
  2. FLOMAX                             /00889901/ [Concomitant]
     Indication: Urine flow decreased
     Dosage: UNK
     Route: 065
     Dates: start: 2007
  3. ATORVASTATIN [Concomitant]
     Active Substance: ATORVASTATIN
     Indication: Blood cholesterol increased
     Dosage: UNK
     Route: 065
     Dates: start: 2019
  4. MACROBID                           /00984601/ [Concomitant]
     Indication: Prophylaxis
     Dosage: UNK
     Route: 065
     Dates: start: 202103
  5. ALIGN [Concomitant]
     Active Substance: BIFIDOBACTERIUM LONGUM SUBSP. INFANTIS
     Indication: Routine health maintenance
     Dosage: UNK
     Route: 065
     Dates: start: 2021
  6. PROBIOTIC                          /06395501/ [Concomitant]
     Indication: Routine health maintenance
     Dosage: UNK
     Route: 065
     Dates: start: 2013, end: 2021
  7. OMEGA 3                            /01333901/ [Concomitant]
     Indication: Supplementation therapy
     Dosage: UNK
     Route: 065
     Dates: start: 2001
  8. VITAMIN D3 [Concomitant]
     Active Substance: CHOLECALCIFEROL
     Indication: Supplementation therapy
     Dosage: UNK
     Route: 065
     Dates: start: 2016
  9. BIOTIN [Concomitant]
     Active Substance: BIOTIN
     Indication: Alopecia
     Dosage: UNK
     Route: 065
     Dates: start: 2006
  10. LEVOCETIRIZINE [Concomitant]
     Active Substance: LEVOCETIRIZINE
     Indication: Seasonal allergy
     Dosage: UNK
     Route: 065
  11. CENTRUM SILVER                     /06011601/ [Concomitant]
     Indication: Supplementation therapy
     Dosage: UNK
     Route: 065
     Dates: start: 2006
  12. HERBALS [Concomitant]
     Active Substance: HERBALS
     Indication: Bowel movement irregularity
     Dosage: UNK
     Route: 065
     Dates: start: 202012

REACTIONS (2)
  - Diarrhoea [Recovered/Resolved]
  - Underdose [Recovered/Resolved]

NARRATIVE: CASE EVENT DATE: 20210529
